FAERS Safety Report 21183291 (Version 4)
Quarter: 2023Q2

REPORT INFORMATION
  Report Type: Spontaneous
  Country: US (occurrence: US)
  Receive Date: 20220808
  Receipt Date: 20230512
  Transmission Date: 20230721
  Serious: No
  Sender: FDA-Public Use
  Company Number: US-VIIV HEALTHCARE LIMITED-US2022AMR112689

PATIENT
  Sex: Male

DRUGS (8)
  1. RILPIVIRINE [Suspect]
     Active Substance: RILPIVIRINE
     Indication: HIV infection
     Dosage: UNK, UNK, Z, 600/900 MG, EVERY 2 MONTHS
     Route: 030
     Dates: start: 20220425
  2. RILPIVIRINE [Suspect]
     Active Substance: RILPIVIRINE
     Dosage: UNK, UNK, Z, 600/900 MG, EVERY 2 MONTHS
     Route: 030
     Dates: start: 20220525
  3. RILPIVIRINE [Suspect]
     Active Substance: RILPIVIRINE
     Dosage: UNK, UNK, Z, 600/900 MG, EVERY 2 MONTHS
     Route: 030
  4. CABOTEGRAVIR [Suspect]
     Active Substance: CABOTEGRAVIR
     Indication: HIV infection
     Dosage: UNK, UNK, Z, 600/900 MG, EVERY 2 MONTHS
     Route: 065
     Dates: start: 20220425
  5. CABOTEGRAVIR [Suspect]
     Active Substance: CABOTEGRAVIR
     Dosage: UNK, UNK, Z, 600/900 MG, EVERY 2 MONTHS
     Route: 065
     Dates: start: 20220525
  6. CABOTEGRAVIR [Suspect]
     Active Substance: CABOTEGRAVIR
     Dosage: UNK, UNK, Z, 600/900 MG, EVERY 2 MONTHS
     Route: 065
  7. VOCABRIA [Concomitant]
     Active Substance: CABOTEGRAVIR SODIUM
     Indication: HIV infection
     Dosage: UNK
     Route: 048
     Dates: start: 20220322
  8. EDURANT [Concomitant]
     Active Substance: RILPIVIRINE HYDROCHLORIDE
     Indication: HIV infection
     Dosage: UNK
     Route: 048
     Dates: start: 20220322

REACTIONS (1)
  - Viral load increased [Recovering/Resolving]

NARRATIVE: CASE EVENT DATE: 20220101
